FAERS Safety Report 13542199 (Version 1)
Quarter: 2017Q2

REPORT INFORMATION
  Report Type: Spontaneous
  Country: US (occurrence: US)
  Receive Date: 20170512
  Receipt Date: 20170512
  Transmission Date: 20170830
  Serious: Yes (Life-Threatening, Hospitalization)
  Sender: FDA-Public Use
  Company Number: US-ROCHE-758625

PATIENT
  Age: 68 Year
  Sex: Female
  Weight: 52 kg

DRUGS (47)
  1. AVASTIN [Suspect]
     Active Substance: BEVACIZUMAB
     Route: 042
  2. AVASTIN [Suspect]
     Active Substance: BEVACIZUMAB
     Route: 042
  3. AVASTIN [Suspect]
     Active Substance: BEVACIZUMAB
     Route: 042
  4. AVASTIN [Suspect]
     Active Substance: BEVACIZUMAB
     Route: 042
  5. ATIVAN [Concomitant]
     Active Substance: LORAZEPAM
     Indication: ANXIETY
     Dosage: 2-3 TABS AT BEDTIME AS NEEDED
     Route: 048
  6. ZOFRAN [Concomitant]
     Active Substance: ONDANSETRON HYDROCHLORIDE
     Indication: NAUSEA
     Dosage: AS NEEDED
     Route: 048
  7. AVASTIN [Suspect]
     Active Substance: BEVACIZUMAB
     Route: 042
  8. AVASTIN [Suspect]
     Active Substance: BEVACIZUMAB
     Route: 042
  9. AVASTIN [Suspect]
     Active Substance: BEVACIZUMAB
     Route: 042
  10. AVASTIN [Suspect]
     Active Substance: BEVACIZUMAB
     Route: 042
  11. PREDNISONE. [Concomitant]
     Active Substance: PREDNISONE
     Dosage: TAKE 5 TABS: 13 HOURS, 6 HOURS, 1 HOUR PRIOR TO IV CONTRAST
     Route: 048
  12. FOLIC ACID. [Concomitant]
     Active Substance: FOLIC ACID
     Route: 048
  13. MULTIVITAMIN [Concomitant]
     Active Substance: VITAMINS
     Route: 048
  14. AVASTIN [Suspect]
     Active Substance: BEVACIZUMAB
     Route: 042
  15. AVASTIN [Suspect]
     Active Substance: BEVACIZUMAB
     Route: 042
  16. GEMCITABINE HCL [Concomitant]
     Active Substance: GEMCITABINE HYDROCHLORIDE
     Route: 042
  17. VITAMIN B COMPLEX [Concomitant]
     Active Substance: CYANOCOBALAMIN\DEXPANTHENOL\NIACINAMIDE\PYRIDOXINE HYDROCHLORIDE\RIBOFLAVIN 5^-PHOSPHATE SODIUM\THIAMINE HYDROCHLORIDE\VITAMIN B COMPLEX
     Route: 048
  18. AVASTIN [Suspect]
     Active Substance: BEVACIZUMAB
     Route: 042
  19. AVASTIN [Suspect]
     Active Substance: BEVACIZUMAB
     Route: 042
  20. AVASTIN [Suspect]
     Active Substance: BEVACIZUMAB
     Indication: OVARIAN CANCER METASTATIC
     Dosage: DOSE: 10MG/KG OR 15MG/KG, FREQUENCY: Q2WK/Q3WK
     Route: 042
  21. AVASTIN [Suspect]
     Active Substance: BEVACIZUMAB
     Route: 042
  22. AVASTIN [Suspect]
     Active Substance: BEVACIZUMAB
     Route: 042
  23. AVASTIN [Suspect]
     Active Substance: BEVACIZUMAB
     Route: 042
  24. AVASTIN [Suspect]
     Active Substance: BEVACIZUMAB
     Route: 042
  25. AVASTIN [Suspect]
     Active Substance: BEVACIZUMAB
     Route: 042
  26. AVASTIN [Suspect]
     Active Substance: BEVACIZUMAB
     Route: 042
  27. AVASTIN [Suspect]
     Active Substance: BEVACIZUMAB
     Route: 042
  28. AVASTIN [Suspect]
     Active Substance: BEVACIZUMAB
     Route: 042
     Dates: start: 20101208, end: 20101210
  29. CYTOXAN [Concomitant]
     Active Substance: CYCLOPHOSPHAMIDE
     Indication: OVARIAN CANCER METASTATIC
     Route: 065
  30. FLONASE [Concomitant]
     Active Substance: FLUTICASONE PROPIONATE
     Dosage: 2 SPRAYS ONCE DAILY-ALTERNATE NOSTRILS
     Route: 050
  31. ALLEGRA [Concomitant]
     Active Substance: FEXOFENADINE HYDROCHLORIDE
     Route: 048
  32. CALCIUM/VITAMIN D [Concomitant]
     Active Substance: CALCIUM\VITAMIN D
     Route: 048
  33. AVASTIN [Suspect]
     Active Substance: BEVACIZUMAB
     Route: 042
  34. AVASTIN [Suspect]
     Active Substance: BEVACIZUMAB
     Route: 042
  35. AVASTIN [Suspect]
     Active Substance: BEVACIZUMAB
     Route: 042
  36. AVASTIN [Suspect]
     Active Substance: BEVACIZUMAB
     Route: 042
  37. PRILOSEC [Concomitant]
     Active Substance: OMEPRAZOLE MAGNESIUM
     Route: 048
  38. LYSINE [Concomitant]
     Active Substance: LYSINE
     Route: 048
  39. AVASTIN [Suspect]
     Active Substance: BEVACIZUMAB
     Route: 042
  40. WARFARIN [Concomitant]
     Active Substance: WARFARIN
     Dosage: 17.5MG/WEEK OR 2.5 MG DAILY OR AS DIRECTED
     Route: 048
  41. PROVENTIL [Concomitant]
     Active Substance: ALBUTEROL
     Indication: WHEEZING
     Dosage: INHALE 1-2 PUFFS EVERY 4 HOUR AS NEEDED
     Route: 048
  42. AVASTIN [Suspect]
     Active Substance: BEVACIZUMAB
     Route: 042
  43. MIRALAX [Concomitant]
     Active Substance: POLYETHYLENE GLYCOL 3350
     Route: 048
  44. MICROZIDE [Concomitant]
     Active Substance: HYDROCHLOROTHIAZIDE
     Indication: BLOOD PRESSURE MEASUREMENT
     Dosage: USE AS NEEDED
     Route: 048
  45. AVAPRO [Concomitant]
     Active Substance: IRBESARTAN
     Route: 048
  46. FLUCONAZOLE. [Concomitant]
     Active Substance: FLUCONAZOLE
     Route: 048
  47. COMPAZINE [Concomitant]
     Active Substance: PROCHLORPERAZINE MALEATE
     Indication: VOMITING
     Dosage: AS NEEDED
     Route: 048

REACTIONS (1)
  - Female genital tract fistula [Recovered/Resolved]

NARRATIVE: CASE EVENT DATE: 20101210
